FAERS Safety Report 4940143-7 (Version None)
Quarter: 2006Q1

REPORT INFORMATION
  Report Type: 
  Country: None (occurrence: None)
  Receive Date: 20060307
  Receipt Date: 20060228
  Transmission Date: 20060701
  Serious: Yes (Hospitalization)
  Sender: FDA-Public Use
  Company Number: 002#4#2006-00051

PATIENT
  Age: 25 Year
  Sex: Female
  Weight: 61.2356 kg

DRUGS (2)
  1. ROBAXIN [Suspect]
     Indication: CONTUSION
     Dosage: ASNEC, ORAL
     Route: 048
  2. ROBAXIN [Suspect]
     Indication: PAIN
     Dosage: ASNEC, ORAL
     Route: 048

REACTIONS (1)
  - MANIA [None]
